FAERS Safety Report 18016140 (Version 6)
Quarter: 2020Q4

REPORT INFORMATION
  Report Type: Spontaneous
  Country: US (occurrence: US)
  Receive Date: 20200713
  Receipt Date: 20201105
  Transmission Date: 20210113
  Serious: Yes (Hospitalization, Other)
  Sender: FDA-Public Use
  Company Number: US-MALLINCKRODT-T202002552

PATIENT
  Age: 80 Year
  Sex: Male
  Weight: 75 kg

DRUGS (2)
  1. H.P. ACTHAR [Suspect]
     Active Substance: CORTICOTROPIN
     Indication: RHEUMATOID ARTHRITIS
     Dosage: 80 UNITS (1ML), TWICE WEEKLY, AS DIRECTED
     Route: 058
     Dates: start: 20200529, end: 2020
  2. RITUXIMAB. [Suspect]
     Active Substance: RITUXIMAB
     Indication: PRODUCT USED FOR UNKNOWN INDICATION
     Dosage: UNK
     Route: 065

REACTIONS (19)
  - Insomnia [Unknown]
  - Injection site erythema [Recovering/Resolving]
  - Pneumothorax [Unknown]
  - Granulomatosis with polyangiitis [Unknown]
  - Bronchitis [Unknown]
  - Injection site pain [Unknown]
  - Injection site discolouration [Not Recovered/Not Resolved]
  - Tumour excision [Unknown]
  - Pneumonia [Unknown]
  - Respiratory tract congestion [Unknown]
  - Mouth haemorrhage [Unknown]
  - Increased appetite [Unknown]
  - Injection site mass [Not Recovered/Not Resolved]
  - Injection site warmth [Unknown]
  - Weight increased [Unknown]
  - Injection site bruising [Unknown]
  - Lower respiratory tract infection [Unknown]
  - Skin cancer [Unknown]
  - Injection site pruritus [Unknown]

NARRATIVE: CASE EVENT DATE: 2020
